FAERS Safety Report 18514940 (Version 1)
Quarter: 2020Q4

REPORT INFORMATION
  Report Type: Spontaneous
  Country: US (occurrence: US)
  Receive Date: 20201118
  Receipt Date: 20201118
  Transmission Date: 20210114
  Serious: No
  Sender: FDA-Public Use
  Company Number: US-UCBSA-2020015137

PATIENT
  Sex: Male

DRUGS (7)
  1. DIASTAT ACUDIAL [Concomitant]
     Active Substance: DIAZEPAM
     Indication: SEIZURE
     Dosage: 15 MG, AS NEEDED (PRN)
     Route: 054
  2. TYLENOL [Concomitant]
     Active Substance: ACETAMINOPHEN
     Indication: PRODUCT USED FOR UNKNOWN INDICATION
     Dosage: 500-1000 MG EVERY 6 HOURS, 4X/DAY (QID)
     Route: 048
  3. VIMPAT [Suspect]
     Active Substance: LACOSAMIDE
     Indication: PRODUCT USED FOR UNKNOWN INDICATION
     Dosage: 300 MILLIGRAM, 2X/DAY (BID)
     Route: 048
  4. CANNABIS SATIVA [Concomitant]
     Active Substance: CANNABIS SATIVA FLOWERING TOP
     Indication: PRODUCT USED FOR UNKNOWN INDICATION
     Dosage: UNK
  5. CBD OIL [Concomitant]
     Active Substance: CANNABIDIOL\HERBALS
     Indication: PRODUCT USED FOR UNKNOWN INDICATION
     Dosage: UNK
  6. KEPPRA [Concomitant]
     Active Substance: LEVETIRACETAM
     Indication: SEIZURE
     Dosage: 750 MILLIGRAM, 2X/DAY (BID)
     Route: 048
  7. VITAMIN D3 [Concomitant]
     Active Substance: CHOLECALCIFEROL
     Indication: PRODUCT USED FOR UNKNOWN INDICATION
     Dosage: 4000 INTERNATIONAL UNIT, ONCE DAILY (QD)
     Route: 048

REACTIONS (2)
  - Overdose [Unknown]
  - Off label use [Unknown]
